FAERS Safety Report 5355395-1 (Version None)
Quarter: 2007Q2

REPORT INFORMATION
  Report Type: 
  Country: None (occurrence: None)
  Receive Date: 20070530
  Receipt Date: 20070118
  Transmission Date: 20071010
  Serious: Yes (Hospitalization)
  Sender: FDA-Public Use
  Company Number: US200609003584

PATIENT
  Age: 56 Year
  Sex: Female
  Weight: 76.2 kg

DRUGS (2)
  1. ZYPREXA [Suspect]
     Dosage: 5 MG
     Dates: start: 20020916, end: 20030815
  2. ZOLOFT [Concomitant]

REACTIONS (1)
  - DIABETES MELLITUS [None]
